FAERS Safety Report 23670485 (Version 1)
Quarter: 2024Q1

REPORT INFORMATION
  Report Type: Report from Study
  Country: US (occurrence: US)
  Receive Date: 20240326
  Receipt Date: 20240326
  Transmission Date: 20240410
  Serious: Yes (Other)
  Sender: FDA-Public Use
  Company Number: US-ABBVIE-5301139

PATIENT
  Sex: Male

DRUGS (2)
  1. VENCLEXTA [Suspect]
     Active Substance: VENETOCLAX
     Indication: Vascular access placement
     Dosage: FORM STRENGTH: 100 MILLIGRAM?DOSE INCREASED
     Route: 048
     Dates: start: 202306
  2. VENCLEXTA [Suspect]
     Active Substance: VENETOCLAX
     Indication: Vascular access placement
     Dosage: FORM STRENGTH: 100 MILLIGRAM
     Route: 048

REACTIONS (4)
  - Renal failure [Unknown]
  - Off label use [Unknown]
  - Product prescribing error [Unknown]
  - Cardiac disorder [Unknown]
